FAERS Safety Report 23860362 (Version 5)
Quarter: 2025Q2

REPORT INFORMATION
  Report Type: Report from Study
  Country: DE (occurrence: DE)
  Receive Date: 20240515
  Receipt Date: 20250402
  Transmission Date: 20250716
  Serious: Yes (Hospitalization, Other)
  Sender: ABBVIE
  Company Number: DE-ABBVIE-5760670

PATIENT
  Age: 77 Year
  Sex: Female

DRUGS (16)
  1. CARBIDOPA\LEVODOPA [Suspect]
     Active Substance: CARBIDOPA\LEVODOPA
     Indication: Parkinson^s disease
     Route: 050
     Dates: start: 20200918
  2. CARBIDOPA\LEVODOPA [Suspect]
     Active Substance: CARBIDOPA\LEVODOPA
  3. ENOXAPARIN SODIUM [Concomitant]
     Active Substance: ENOXAPARIN SODIUM
     Indication: Thrombosis prophylaxis
     Route: 065
  4. ASPIRIN [Concomitant]
     Active Substance: ASPIRIN
     Indication: Product used for unknown indication
     Route: 048
  5. AMLODIPINE BESYLATE [Concomitant]
     Active Substance: AMLODIPINE BESYLATE
     Indication: Product used for unknown indication
     Route: 048
  6. ATORVASTATIN [Concomitant]
     Active Substance: ATORVASTATIN
     Indication: Product used for unknown indication
     Route: 048
  7. IRON [Concomitant]
     Active Substance: IRON
     Indication: Product used for unknown indication
     Route: 048
  8. FENOTEROL [Concomitant]
     Active Substance: FENOTEROL
     Indication: Dyspnoea
  9. FOLIC ACID [Concomitant]
     Active Substance: FOLIC ACID
     Indication: Product used for unknown indication
     Route: 048
  10. LEVOTHYROXINE [Concomitant]
     Active Substance: LEVOTHYROXINE
     Indication: Product used for unknown indication
     Route: 048
  11. POLYETHYLENE GLYCOLS [Concomitant]
     Active Substance: POLYETHYLENE GLYCOLS
     Indication: Product used for unknown indication
  12. Metamizol Heumann [Concomitant]
     Indication: Product used for unknown indication
     Route: 048
  13. METOPROLOL [Concomitant]
     Active Substance: METOPROLOL
     Indication: Product used for unknown indication
     Route: 048
  14. PANTOPRAZOLE SODIUM [Concomitant]
     Active Substance: PANTOPRAZOLE SODIUM
     Indication: Product used for unknown indication
  15. RAMIPRIL [Concomitant]
     Active Substance: RAMIPRIL
     Indication: Product used for unknown indication
     Route: 048
  16. SAFINAMIDE [Concomitant]
     Active Substance: SAFINAMIDE
     Indication: Product used for unknown indication
     Route: 048

REACTIONS (26)
  - Femur fracture [Unknown]
  - Femoral neck fracture [Recovered/Resolved with Sequelae]
  - Pain in extremity [Unknown]
  - Bone operation [Recovering/Resolving]
  - On and off phenomenon [Not Recovered/Not Resolved]
  - Overdose [Recovered/Resolved]
  - Psychomotor hyperactivity [Unknown]
  - Fall [Recovered/Resolved]
  - Gait inability [Not Recovered/Not Resolved]
  - Post procedural haemorrhage [Recovered/Resolved]
  - Wound [Unknown]
  - Atrial fibrillation [Unknown]
  - CHA2DS2-VASc annual stroke risk high [Unknown]
  - Abdominal adhesiolysis [Unknown]
  - Laparotomy [Unknown]
  - Ileus [Unknown]
  - Hernia hiatus repair [Unknown]
  - Coronavirus test positive [Recovered/Resolved]
  - Device dislocation [Unknown]
  - Device issue [Unknown]
  - Abdominal pain upper [Unknown]
  - Chest pain [Unknown]
  - Faecaloma [Unknown]
  - Abdominal adhesiolysis [Unknown]
  - Gastrointestinal decompression [Unknown]
  - Fall [Recovered/Resolved]

NARRATIVE: CASE EVENT DATE: 20210311
